FAERS Safety Report 7244833-5 (Version None)
Quarter: 2011Q1

REPORT INFORMATION
  Report Type: 
  Country: None (occurrence: None)
  Receive Date: 20110126
  Receipt Date: 20110123
  Transmission Date: 20110831
  Serious: No
  Sender: FDA-Public Use
  Company Number: US-PFIZER INC-2010054355

PATIENT
  Sex: Male
  Weight: 83.9 kg

DRUGS (4)
  1. VIAGRA [Suspect]
     Indication: MALE SEXUAL DYSFUNCTION
     Dosage: UNK
     Route: 048
     Dates: start: 20090101
  2. VIAGRA [Suspect]
     Indication: ERECTILE DYSFUNCTION
     Dosage: 50 MG, AS NEEDED
     Route: 048
  3. CLOMIPRAMINE [Concomitant]
     Indication: PANIC ATTACK
  4. CLOMIPRAMINE [Concomitant]
     Indication: ANXIETY
     Dosage: 100 MG, 1X/DAY

REACTIONS (1)
  - DRUG INEFFECTIVE [None]
